FAERS Safety Report 4845256-6 (Version None)
Quarter: 2005Q4

REPORT INFORMATION
  Report Type: 
  Country: None (occurrence: None)
  Receive Date: 20051125
  Receipt Date: 20051114
  Transmission Date: 20060501
  Serious: Yes (Other)
  Sender: FDA-Public Use
  Company Number: S05-USA-05006-02

PATIENT
  Sex: Male

DRUGS (2)
  1. LEXAPRO [Suspect]
     Dosage: 10 MG QD TRANSPLACENTAL
     Route: 064
     Dates: end: 20051106
  2. LEXAPRO [Suspect]
     Dosage: 10 MG QD BF
     Dates: start: 20051106

REACTIONS (5)
  - CAESAREAN SECTION [None]
  - DRUG EXPOSURE DURING PREGNANCY [None]
  - DRUG EXPOSURE VIA BREAST MILK [None]
  - HYPERBILIRUBINAEMIA NEONATAL [None]
  - HYPERTENSION NEONATAL [None]
